FAERS Safety Report 6176982-7 (Version None)
Quarter: 2009Q2

REPORT INFORMATION
  Report Type: 
  Country: None (occurrence: None)
  Receive Date: 20090501
  Receipt Date: 20090206
  Transmission Date: 20091009
  Serious: Yes (Other)
  Sender: FDA-Public Use
  Company Number: US-ALEXION-A200900065

PATIENT
  Sex: Male

DRUGS (10)
  1. SOLIRIS [Suspect]
     Indication: PAROXYSMAL NOCTURNAL HAEMOGLOBINURIA
     Dosage: 600 MG, QWKX4WKS
     Route: 042
     Dates: start: 20080804
  2. SOLIRIS [Suspect]
     Dosage: 900 MG, Q2WKS
     Route: 042
     Dates: start: 20080902
  3. LORTAB [Concomitant]
     Indication: PAIN
     Dosage: 5/500 PRN
  4. ACYCLOVIR [Concomitant]
     Indication: PROPHYLAXIS
     Dosage: 400 MG, BID
  5. SPIRONOLACTONE [Concomitant]
     Dosage: 50 MG, BID
  6. WARFARIN SODIUM [Concomitant]
     Dosage: 5 MG ALTERNATING WITH 2.5 MG
  7. LASIX [Concomitant]
     Dosage: 20 MG, QD
  8. NADOLOL [Concomitant]
     Dosage: 20 MG, BID
     Route: 048
  9. PREDNISONE [Concomitant]
     Dosage: 10 MG, QD
  10. ATIVAN [Concomitant]

REACTIONS (1)
  - PORTAL HYPERTENSION [None]
